FAERS Safety Report 5449536-5 (Version None)
Quarter: 2007Q3

REPORT INFORMATION
  Report Type: 
  Country: None (occurrence: None)
  Receive Date: 20070907
  Receipt Date: 20070828
  Transmission Date: 20080115
  Serious: Yes (Other)
  Sender: FDA-Public Use
  Company Number: US021165

PATIENT
  Sex: Female

DRUGS (1)
  1. PROVIGIL [Suspect]
     Indication: FATIGUE
     Dosage: 200 MG BID ORAL
     Route: 048

REACTIONS (1)
  - ENDOMETRIAL CANCER [None]
